FAERS Safety Report 9661989 (Version 2)
Quarter: 2013Q4

REPORT INFORMATION
  Report Type: Spontaneous
  Country: US (occurrence: US)
  Receive Date: 20131031
  Receipt Date: 20131031
  Transmission Date: 20140711
  Serious: No
  Sender: FDA-Public Use
  Company Number: US-PURDUE-USA-2011-0062735

PATIENT
  Sex: Female
  Weight: 99.77 kg

DRUGS (1)
  1. OXYCONTIN (NDA 22-272) [Suspect]
     Indication: PAIN
     Dosage: 160 MG, BID
     Dates: start: 2010, end: 20110208

REACTIONS (2)
  - Abnormal sleep-related event [Unknown]
  - Somnambulism [Recovered/Resolved]
